FAERS Safety Report 24423595 (Version 1)
Quarter: 2024Q4

REPORT INFORMATION
  Report Type: Spontaneous
  Country: US (occurrence: US)
  Receive Date: 20241010
  Receipt Date: 20241010
  Transmission Date: 20250115
  Serious: No
  Sender: NOVARTIS
  Company Number: US-002147023-NVSC2024US199582

PATIENT
  Sex: Male

DRUGS (1)
  1. LEQVIO [Suspect]
     Active Substance: INCLISIRAN SODIUM
     Indication: Hyperlipidaemia
     Dosage: 284 MG, OTHER (LIQUID, DAY 1 THEN 3 MONTHS AND EVERY 6 MONTHS THEREAFTER)
     Route: 058
     Dates: start: 202407

REACTIONS (1)
  - International normalised ratio decreased [Recovering/Resolving]
